FAERS Safety Report 5143201-X (Version None)
Quarter: 2006Q4

REPORT INFORMATION
  Report Type: 
  Country: None (occurrence: None)
  Receive Date: 20061103
  Receipt Date: 20061017
  Transmission Date: 20070319
  Serious: Yes (Other)
  Sender: FDA-Public Use
  Company Number: PHBS2006NO16165

PATIENT
  Sex: Male

DRUGS (2)
  1. ZOMETA [Suspect]
     Indication: PROSTATE CANCER
     Dosage: UNK, UNK
     Route: 065
     Dates: start: 20040401
  2. AREDIA [Suspect]
     Indication: PROSTATE CANCER
     Dosage: UNK, UNK
     Route: 065
     Dates: start: 20040601

REACTIONS (1)
  - OSTEONECROSIS [None]
